FAERS Safety Report 6149994-7 (Version None)
Quarter: 2009Q2

REPORT INFORMATION
  Report Type: 
  Country: None (occurrence: None)
  Receive Date: 20090409
  Receipt Date: 20090406
  Transmission Date: 20091009
  Serious: Yes (Hospitalization, Other)
  Sender: FDA-Public Use
  Company Number: B0561754A

PATIENT
  Sex: Female

DRUGS (7)
  1. ARIXTRA [Suspect]
     Indication: THROMBOSIS PROPHYLAXIS
     Dosage: 2.5MG PER DAY
     Route: 058
     Dates: start: 20090115, end: 20090119
  2. LIVALO [Concomitant]
     Route: 048
  3. THYRADIN [Concomitant]
     Route: 048
  4. DEPAKENE [Concomitant]
     Route: 048
  5. UNKNOWN DRUG [Concomitant]
  6. RHYTHMY [Concomitant]
  7. ALOSENN [Concomitant]
     Route: 048

REACTIONS (4)
  - HAEMATOMA [None]
  - HAEMOPHILUS INFECTION [None]
  - HAEMORRHAGE SUBCUTANEOUS [None]
  - PNEUMONIA [None]
